FAERS Safety Report 8499868-1 (Version None)
Quarter: 2012Q3

REPORT INFORMATION
  Report Type: 
  Country: None (occurrence: None)
  Receive Date: 20120703
  Receipt Date: 20120703
  Transmission Date: 20120928
  Serious: Yes (Hospitalization)
  Sender: FDA-Public Use
  Company Number: None

PATIENT
  Sex: Male
  Weight: 75.2 kg

DRUGS (5)
  1. PREDNISONE [Concomitant]
  2. SOLU-MEDROL [Concomitant]
  3. NULOJIX [Suspect]
     Indication: RENAL TRANSPLANT
     Dosage: 841 MG Q 4WEEKS IV LAST DOSE
     Route: 042
     Dates: end: 20120621
  4. CELLCEPT [Suspect]
     Indication: RENAL TRANSPLANT
     Dosage: 1,000 MG BID PO
     Route: 048
     Dates: start: 20120525
  5. ALEMTUZUMAB [Concomitant]

REACTIONS (2)
  - POST PROCEDURAL DISCHARGE [None]
  - HYDRONEPHROSIS [None]
